FAERS Safety Report 9832893 (Version 1)
Quarter: 2014Q1

REPORT INFORMATION
  Report Type: Spontaneous
  Country: CH (occurrence: CH)
  Receive Date: 20140121
  Receipt Date: 20140121
  Transmission Date: 20141002
  Serious: Yes (Hospitalization)
  Sender: FDA-Public Use
  Company Number: CH-PFIZER INC-2014013754

PATIENT
  Age: 84 Year
  Sex: Male

DRUGS (5)
  1. DETRUSITOL SR [Suspect]
     Indication: URINARY INCONTINENCE
     Dosage: 4 MG, 1X/DAY
     Route: 048
     Dates: start: 201311, end: 20131127
  2. PRADIF [Concomitant]
     Dosage: UNK
  3. QUILONORM [Concomitant]
     Dosage: UNK
  4. REBALANCE [Concomitant]
     Dosage: UNK
  5. LORAMET [Concomitant]
     Dosage: UNK

REACTIONS (1)
  - Mixed liver injury [Recovering/Resolving]
